FAERS Safety Report 11507364 (Version 1)
Quarter: 2015Q3

REPORT INFORMATION
  Report Type: Spontaneous
  Country: US (occurrence: None)
  Receive Date: 20150914
  Receipt Date: 20150914
  Transmission Date: 20151125
  Serious: Yes (Other)
  Sender: FDA-Public Use
  Company Number: None

PATIENT
  Age: 50 Year
  Sex: Male
  Weight: 85.28 kg

DRUGS (1)
  1. COARTEM [Suspect]
     Active Substance: ARTEMETHER\LUMEFANTRINE
     Indication: MALARIA
     Dosage: 1 PILLS
     Route: 048
     Dates: start: 20150827, end: 20150830

REACTIONS (3)
  - Rash [None]
  - Scar [None]
  - Rash pruritic [None]

NARRATIVE: CASE EVENT DATE: 20150830
